FAERS Safety Report 4459974-5 (Version None)
Quarter: 2004Q3

REPORT INFORMATION
  Report Type: 
  Country: None (occurrence: None)
  Receive Date: 20040928
  Receipt Date: 20030917
  Transmission Date: 20050211
  Serious: No
  Sender: FDA-Public Use
  Company Number: US-GLAXOSMITHKLINE-A0426340A

PATIENT
  Age: 82 Year
  Sex: Male

DRUGS (2)
  1. SEREVENT [Suspect]
     Dosage: 1PUFF SINGLE DOSE
     Route: 055
     Dates: start: 20030916
  2. THEOPHYLLINE [Concomitant]

REACTIONS (1)
  - DIZZINESS [None]
